FAERS Safety Report 5009104-6 (Version None)
Quarter: 2006Q2

REPORT INFORMATION
  Report Type: 
  Country: None (occurrence: None)
  Receive Date: 20060519
  Receipt Date: 20060512
  Transmission Date: 20061013
  Serious: Yes (Other)
  Sender: FDA-Public Use
  Company Number: 200611969GDS

PATIENT
  Age: 72 Year
  Sex: Female

DRUGS (3)
  1. ASPIRIN [Suspect]
     Indication: CARDIAC DISORDER
     Dosage: 100 MG, QD, ORAL
     Route: 048
     Dates: start: 20060110, end: 20060310
  2. GLIBOMET [Concomitant]
  3. FOLINA [Concomitant]

REACTIONS (2)
  - ANAEMIA [None]
  - ASTHENIA [None]
